FAERS Safety Report 11128479 (Version 1)
Quarter: 2015Q2

REPORT INFORMATION
  Report Type: Spontaneous
  Country: AU (occurrence: None)
  Receive Date: 20150519
  Receipt Date: 20150519
  Transmission Date: 20150821
  Serious: Yes (Other)
  Sender: FDA-Public Use
  Company Number: AU-LHC-2015053

PATIENT
  Age: 85 Year
  Sex: Female

DRUGS (1)
  1. OXYGEN. [Suspect]
     Active Substance: OXYGEN
     Indication: SURGERY
     Dosage: 4 L/MIN FOR 20 MINUTES, INHALATION
     Route: 055

REACTIONS (6)
  - Abdominal pain [None]
  - Nausea [None]
  - Gastric perforation [None]
  - Abdominal distension [None]
  - Necrosis [None]
  - Chest pain [None]
